FAERS Safety Report 20075169 (Version 1)
Quarter: 2021Q4

REPORT INFORMATION
  Report Type: Spontaneous
  Country: US (occurrence: US)
  Receive Date: 20211116
  Receipt Date: 20211116
  Transmission Date: 20220303
  Serious: No
  Sender: FDA-Public Use
  Company Number: US-SA-SAC20211109001416

PATIENT
  Sex: Male

DRUGS (4)
  1. DUPIXENT [Suspect]
     Active Substance: DUPILUMAB
     Indication: Dermatitis atopic
     Dosage: 600 MG, TOTAL
     Route: 058
     Dates: start: 20211023, end: 20211023
  2. CLOBETASOL PROPIONATE [Concomitant]
     Active Substance: CLOBETASOL PROPIONATE
  3. DESONIDE [Concomitant]
     Active Substance: DESONIDE
  4. EUCRISA [Concomitant]
     Active Substance: CRISABOROLE
     Indication: Dermatitis atopic

REACTIONS (3)
  - Pruritus [Recovering/Resolving]
  - Dry skin [Unknown]
  - Skin exfoliation [Unknown]
